FAERS Safety Report 5924653-1 (Version None)
Quarter: 2008Q4

REPORT INFORMATION
  Report Type: 
  Country: None (occurrence: None)
  Receive Date: 20081016
  Receipt Date: 20081003
  Transmission Date: 20090506
  Serious: Yes (Other)
  Sender: FDA-Public Use
  Company Number: 2008-184847-NL

PATIENT
  Age: 79 Year
  Sex: Male

DRUGS (6)
  1. REMERON [Suspect]
     Indication: ANXIETY
     Dosage: 15 MG DAILY
     Dates: start: 20080903
  2. REMERON [Suspect]
     Indication: ANXIETY
     Dosage: 30 MG DAILY
     Dates: start: 20080901
  3. REMERON [Suspect]
     Indication: ANXIETY
     Dosage: 45 MG DAILY
     Dates: start: 20080901
  4. REMERON [Suspect]
     Dosage: 15 MGDAILY,DOSE WAS TAPERED OFF
     Dates: start: 20080901, end: 20080929
  5. ATENOLOL [Concomitant]
  6. CELEXA [Concomitant]

REACTIONS (3)
  - DRUG INEFFECTIVE [None]
  - MALAISE [None]
  - TACHYCARDIA [None]
